FAERS Safety Report 6423710-3 (Version None)
Quarter: 2009Q4

REPORT INFORMATION
  Report Type: 
  Country: None (occurrence: None)
  Receive Date: 20091102
  Receipt Date: 20091022
  Transmission Date: 20100525
  Serious: Yes (Hospitalization)
  Sender: FDA-Public Use
  Company Number: TH-GENENTECH-289129

PATIENT
  Sex: Female

DRUGS (9)
  1. TRASTUZUMAB [Suspect]
     Indication: BREAST CANCER
     Dosage: 392 MG, Q3W
     Route: 042
     Dates: start: 20090701
  2. AVASTIN [Suspect]
     Indication: BREAST CANCER
     Dosage: 735 MG, Q3W
     Route: 042
     Dates: start: 20090701
  3. DOCETAXEL [Suspect]
     Indication: BREAST CANCER
     Dosage: 142 MG, Q3W
     Route: 042
     Dates: start: 20090701
  4. FLUOROURACIL [Suspect]
     Indication: BREAST CANCER
     Dosage: 670 MG, Q3W
     Route: 042
     Dates: start: 20090902
  5. EPIRUBICIN [Suspect]
     Indication: BREAST CANCER
     Dosage: 167 MG, Q3W
     Route: 042
     Dates: start: 20090902
  6. CYCLOPHOSPHAMIDE [Suspect]
     Indication: BREAST CANCER
     Dosage: 715 MG, Q3W
     Route: 042
     Dates: start: 20090902
  7. METOCLOPRAMIDE [Concomitant]
     Indication: DRUG USE FOR UNKNOWN INDICATION
     Dosage: UNK
     Dates: start: 20090923, end: 20090929
  8. DEXAMETHASONE [Concomitant]
     Indication: DRUG USE FOR UNKNOWN INDICATION
     Dosage: UNK
     Dates: start: 20090924, end: 20090926
  9. SODIUM CHLORIDE [Concomitant]
     Indication: DRUG USE FOR UNKNOWN INDICATION
     Dosage: UNK
     Dates: start: 20090923

REACTIONS (3)
  - ENTERITIS [None]
  - GASTRITIS [None]
  - OESOPHAGITIS [None]
